FAERS Safety Report 11575996 (Version 2)
Quarter: 2015Q4

REPORT INFORMATION
  Report Type: Spontaneous
  Country: US (occurrence: US)
  Receive Date: 20150930
  Receipt Date: 20151013
  Transmission Date: 20160304
  Serious: Yes (Hospitalization, Other)
  Sender: FDA-Public Use
  Company Number: US-PFIZER INC-2015294428

PATIENT
  Age: 53 Year
  Sex: Female

DRUGS (2)
  1. LYRICA [Suspect]
     Active Substance: PREGABALIN
     Dosage: 75 MG, UNK
     Dates: end: 2012
  2. LYRICA [Suspect]
     Active Substance: PREGABALIN
     Indication: FIBROMYALGIA
     Dosage: 100 MG, UNK
     Dates: start: 2005

REACTIONS (19)
  - Condition aggravated [Unknown]
  - Disturbance in social behaviour [Unknown]
  - Depression [Unknown]
  - Mood swings [Unknown]
  - Erythema [Unknown]
  - Peripheral swelling [Unknown]
  - Pain [Unknown]
  - Gastric disorder [Unknown]
  - Myalgia [Unknown]
  - Swelling [Unknown]
  - Vaginal haemorrhage [Unknown]
  - Nausea [Unknown]
  - Drug ineffective [Unknown]
  - Anxiety [Unknown]
  - Dyspnoea [Unknown]
  - Malaise [Not Recovered/Not Resolved]
  - Hypotension [Unknown]
  - Feeling abnormal [Unknown]
  - Headache [Unknown]
